FAERS Safety Report 8056350-3 (Version None)
Quarter: 2012Q1

REPORT INFORMATION
  Report Type: 
  Country: None (occurrence: None)
  Receive Date: 20120119
  Receipt Date: 20120109
  Transmission Date: 20120608
  Serious: Yes (Hospitalization, Disabling, Other)
  Sender: FDA-Public Use
  Company Number: US-ELI_LILLY_AND_COMPANY-US201007003881

PATIENT
  Sex: Female

DRUGS (15)
  1. FORTEO [Suspect]
     Indication: OSTEOPOROSIS
     Dosage: 20 UG, DAILY (1/D)
     Route: 058
     Dates: start: 20100517
  2. FORTEO [Suspect]
     Dosage: 20 UG, QD
     Route: 058
  3. PREVACID [Concomitant]
  4. DIOVAN [Concomitant]
     Indication: HYPERTENSION
     Dosage: 80 MG, QD
  5. VITAMIN D2 [Concomitant]
     Dosage: 2000 IU, QD
  6. LIPITOR [Concomitant]
     Indication: HYPERLIPIDAEMIA
     Dosage: 40 MG, UNK
  7. ANTIHYPERTENSIVES [Concomitant]
  8. FORTEO [Suspect]
     Dosage: 20 UG, DAILY (1/D)
     Route: 058
  9. CALCIUM CITRATE [Concomitant]
     Dosage: UNK, TID
  10. PREDNISONE TAB [Concomitant]
     Dosage: 5 MG, QD
  11. PREDNISONE TAB [Concomitant]
     Dosage: UNK, UNKNOWN
  12. FORTEO [Suspect]
     Dosage: 20 UG, QD
     Route: 058
  13. FORTEO [Suspect]
     Dosage: 20 UG, QD
     Route: 058
  14. FORTEO [Suspect]
     Dosage: 20 UG, DAILY (1/D)
     Route: 058
  15. FORTEO [Suspect]
     Dosage: 20 UG, DAILY (1/D)
     Route: 058

REACTIONS (20)
  - CHRONIC OBSTRUCTIVE PULMONARY DISEASE [None]
  - BLOOD CALCIUM INCREASED [None]
  - GAIT DISTURBANCE [None]
  - INJECTION SITE PAIN [None]
  - DIZZINESS [None]
  - HYPERAESTHESIA [None]
  - FATIGUE [None]
  - GASTRIC DISORDER [None]
  - AMMONIA ABNORMAL [None]
  - AMMONIA [None]
  - BALANCE DISORDER [None]
  - HYPERSENSITIVITY [None]
  - DISABILITY [None]
  - INJECTION SITE HAEMATOMA [None]
  - GASTROINTESTINAL DISORDER [None]
  - BONE PAIN [None]
  - ASTHENIA [None]
  - PNEUMONIA [None]
  - NAUSEA [None]
  - EAR DISORDER [None]
